FAERS Safety Report 5730331-4 (Version None)
Quarter: 2008Q2

REPORT INFORMATION
  Report Type: 
  Country: None (occurrence: None)
  Receive Date: 20080506
  Receipt Date: 20080506
  Transmission Date: 20081010
  Serious: Yes (Other)
  Sender: FDA-Public Use
  Company Number: None

PATIENT
  Age: 39 Year
  Sex: Female
  Weight: 117.9352 kg

DRUGS (1)
  1. SINGULAIR [Suspect]
     Indication: ALLERGIC SINUSITIS
     Dosage: DAILY PO
     Route: 048
     Dates: start: 20070510, end: 20080407

REACTIONS (10)
  - ACTIVITIES OF DAILY LIVING IMPAIRED [None]
  - DECREASED INTEREST [None]
  - DEPRESSION [None]
  - DISSOCIATION [None]
  - FEELING ABNORMAL [None]
  - HYPERSOMNIA [None]
  - IMPAIRED WORK ABILITY [None]
  - MENTAL DISORDER [None]
  - SOCIAL AVOIDANT BEHAVIOUR [None]
  - WEIGHT INCREASED [None]
